FAERS Safety Report 11727062 (Version 1)
Quarter: 2015Q4

REPORT INFORMATION
  Report Type: Report from Study
  Country: US (occurrence: US)
  Receive Date: 20151112
  Receipt Date: 20151112
  Transmission Date: 20160304
  Serious: Yes (Hospitalization)
  Sender: FDA-Public Use
  Company Number: US-ABBVIE-15K-163-1496347-00

PATIENT
  Sex: Female
  Weight: 51.76 kg

DRUGS (2)
  1. TRAMADOL. [Concomitant]
     Active Substance: TRAMADOL
     Indication: PRODUCT USED FOR UNKNOWN INDICATION
  2. HUMIRA [Suspect]
     Active Substance: ADALIMUMAB
     Indication: RHEUMATOID ARTHRITIS
     Route: 058
     Dates: start: 20151103

REACTIONS (5)
  - Dehydration [Recovering/Resolving]
  - Rheumatoid arthritis [Recovering/Resolving]
  - Constipation [Recovering/Resolving]
  - Malnutrition [Recovering/Resolving]
  - Weight decreased [Recovering/Resolving]
